FAERS Safety Report 14538006 (Version 1)
Quarter: 2018Q1

REPORT INFORMATION
  Report Type: Report from Study
  Country: US (occurrence: US)
  Receive Date: 20180216
  Receipt Date: 20180216
  Transmission Date: 20180509
  Serious: Yes (Other)
  Sender: FDA-Public Use
  Company Number: US-ROCHE-2069203

PATIENT
  Age: 60 Year
  Sex: Female
  Weight: 47.67 kg

DRUGS (8)
  1. TORADOL [Concomitant]
     Active Substance: KETOROLAC TROMETHAMINE
     Dosage: ONGOING-YES
     Route: 065
  2. PEPCID (UNITED STATES) [Concomitant]
     Dosage: IV PUSH ;ONGOING: YES
     Route: 042
  3. PRILOSEC [Concomitant]
     Active Substance: OMEPRAZOLE MAGNESIUM
     Indication: GASTROOESOPHAGEAL REFLUX DISEASE
     Dosage: ONGOING-YES
     Route: 065
  4. OCREVUS [Suspect]
     Active Substance: OCRELIZUMAB
     Indication: MULTIPLE SCLEROSIS
     Dosage: ONGOING-YES
     Route: 065
     Dates: start: 20171103
  5. CLARITIN (UNITED STATES) [Concomitant]
     Dosage: 3 DAYS PRIOR AND DAYS AFTER OCREVUS ;ONGOING: YES
     Route: 065
  6. BENADRYL [Concomitant]
     Active Substance: DIPHENHYDRAMINE HYDROCHLORIDE
     Dosage: ONGOING-YES
     Route: 065
  7. KLONOPIN [Suspect]
     Active Substance: CLONAZEPAM
     Indication: SLEEP DISORDER
     Dosage: ONGOING-NO
     Route: 065
     Dates: start: 1999
  8. KLONOPIN [Suspect]
     Active Substance: CLONAZEPAM
     Dosage: ONGOING-YES
     Route: 065
     Dates: start: 1999

REACTIONS (7)
  - Cerebrovascular accident [Unknown]
  - Nasopharyngitis [Recovered/Resolved]
  - Cellulitis [Not Recovered/Not Resolved]
  - Psoriasis [Not Recovered/Not Resolved]
  - Gingival swelling [Not Recovered/Not Resolved]
  - Tooth disorder [Not Recovered/Not Resolved]
  - Insomnia [Not Recovered/Not Resolved]

NARRATIVE: CASE EVENT DATE: 201711
